FAERS Safety Report 9369914 (Version 2)
Quarter: 2013Q3

REPORT INFORMATION
  Report Type: Spontaneous
  Country: US (occurrence: US)
  Receive Date: 20130626
  Receipt Date: 20130730
  Transmission Date: 20140515
  Serious: Yes (Death, Hospitalization)
  Sender: FDA-Public Use
  Company Number: US-PFIZER INC-2013188486

PATIENT
  Age: 48 Year
  Sex: Male

DRUGS (10)
  1. INLYTA [Suspect]
     Indication: RENAL CELL CARCINOMA
     Dosage: 5 MG, UNK
     Route: 048
     Dates: start: 20130606
  2. AFINITOR [Concomitant]
     Dosage: UNK
     Dates: start: 20130408
  3. LANTUS [Concomitant]
     Dosage: UNK
  4. METOPROLOL TARTRATE [Concomitant]
     Dosage: UNK
  5. NOVOLOG [Concomitant]
     Dosage: UNK
  6. TYLENOL [Concomitant]
     Dosage: UNK
  7. HYDROCODONE W/ACETAMINOPHEN [Concomitant]
     Dosage: UNK
  8. WARFARIN SODIUM [Concomitant]
     Dosage: UNK
  9. LORTAB [Concomitant]
     Indication: CHEST PAIN
     Dosage: 5/500, AS NEEDED (Q4-6H)
     Route: 048
  10. LORTAB [Concomitant]
     Indication: ABDOMINAL PAIN

REACTIONS (5)
  - Death [Fatal]
  - Gastrointestinal haemorrhage [Unknown]
  - Disease progression [Unknown]
  - Renal cell carcinoma [Unknown]
  - Deep vein thrombosis [Unknown]
